FAERS Safety Report 24443132 (Version 1)
Quarter: 2024Q4

REPORT INFORMATION
  Report Type: Spontaneous
  Country: DE (occurrence: DE)
  Receive Date: 20241016
  Receipt Date: 20241016
  Transmission Date: 20250115
  Serious: Yes (Other)
  Sender: AMGEN
  Company Number: DE-002147023-NVSC2024DE198284

PATIENT
  Sex: Male

DRUGS (2)
  1. AIMOVIG [Suspect]
     Active Substance: ERENUMAB-AOOE
     Indication: Tension headache
     Dosage: 70 MG, QMO (STRENGTH:70)
     Route: 065
     Dates: start: 20240604, end: 20240904
  2. AIMOVIG [Suspect]
     Active Substance: ERENUMAB-AOOE
     Indication: Migraine
     Dosage: 140 MG, QMO (STRENGTH: 140)
     Route: 065
     Dates: start: 20240904

REACTIONS (13)
  - Cardiovascular insufficiency [Recovered/Resolved]
  - Cardiovascular insufficiency [Recovered/Resolved]
  - Dizziness [Recovered/Resolved]
  - Gait disturbance [Recovered/Resolved]
  - Dizziness [Recovered/Resolved]
  - Gait disturbance [Recovered/Resolved]
  - Heart rate increased [Recovered/Resolved]
  - Dysstasia [Recovered/Resolved]
  - Feeling abnormal [Unknown]
  - Tension [Unknown]
  - Tension headache [Unknown]
  - Headache [Unknown]
  - Inappropriate schedule of product administration [Unknown]

NARRATIVE: CASE EVENT DATE: 20240101
